FAERS Safety Report 19573690 (Version 1)
Quarter: 2021Q3

REPORT INFORMATION
  Report Type: Spontaneous
  Country: PT (occurrence: PT)
  Receive Date: 20210717
  Receipt Date: 20210717
  Transmission Date: 20211014
  Serious: No
  Sender: FDA-Public Use
  Company Number: PT-LUPIN PHARMACEUTICALS INC.-2021-12133

PATIENT

DRUGS (4)
  1. SULFAMETHOXAZOLE AND TRIMETHOPRIM [Suspect]
     Active Substance: SULFAMETHOXAZOLE\TRIMETHOPRIM
     Indication: KLEBSIELLA INFECTION
     Dosage: UNK, RECEIVED IN JULY AND AUGUST [YEAR NOT STATED]
     Route: 065
  2. CEFUROXIME. [Suspect]
     Active Substance: CEFUROXIME
     Indication: KLEBSIELLA INFECTION
     Dosage: UNK, RECEIVED IN JULY AND AUGUST [YEAR NOT STATED]
     Route: 065
  3. LEVOFLOXACIN. [Suspect]
     Active Substance: LEVOFLOXACIN
     Indication: KLEBSIELLA INFECTION
     Dosage: UNK, RECEIVED IN JULY AND AUGUST [YEAR NOT STATED]
     Route: 065
  4. AMOXICILLIN/CLAVULANIC ACID [Suspect]
     Active Substance: AMOXICILLIN\CLAVULANIC ACID
     Indication: KLEBSIELLA INFECTION
     Dosage: UNK, RECEIVED IN JULY AND AUGUST [YEAR NOT STATED]
     Route: 065

REACTIONS (1)
  - Drug resistance [Unknown]

NARRATIVE: CASE EVENT DATE: 2019
